FAERS Safety Report 23297798 (Version 1)
Quarter: 2023Q4

REPORT INFORMATION
  Report Type: Report from Study
  Country: CA (occurrence: CA)
  Receive Date: 20231214
  Receipt Date: 20231214
  Transmission Date: 20240110
  Serious: Yes (Hospitalization, Other)
  Sender: FDA-Public Use
  Company Number: CA-SANDOZ-SDZ2023CA046732

PATIENT
  Sex: Female

DRUGS (3)
  1. HYRIMOZ [Suspect]
     Active Substance: ADALIMUMAB-ADAZ
     Indication: Ankylosing spondylitis
     Dosage: 40 MG, PRE-FILLED PEN
     Route: 058
     Dates: start: 20230808
  2. HYRIMOZ [Suspect]
     Active Substance: ADALIMUMAB-ADAZ
     Dosage: 40 MG, PRE-FILLED PEN
     Route: 058
     Dates: start: 20230905
  3. REMICADE [Suspect]
     Active Substance: INFLIXIMAB
     Indication: Product used for unknown indication
     Dosage: UNK
     Route: 065

REACTIONS (8)
  - Hepatic failure [Unknown]
  - Crohn^s disease [Recovered/Resolved]
  - Ankylosing spondylitis [Unknown]
  - Feeling abnormal [Unknown]
  - Periorbital swelling [Unknown]
  - Inflammation [Unknown]
  - Hypersensitivity [Recovered/Resolved]
  - Chest discomfort [Unknown]
